FAERS Safety Report 6493884-7 (Version None)
Quarter: 2009Q4

REPORT INFORMATION
  Report Type: 
  Country: None (occurrence: None)
  Receive Date: 20091214
  Receipt Date: 20081204
  Transmission Date: 20100525
  Serious: Yes (Hospitalization)
  Sender: FDA-Public Use
  Company Number: US-BRISTOL-MYERS SQUIBB COMPANY-14409528

PATIENT
  Age: 30 Year
  Sex: Male

DRUGS (3)
  1. ABILIFY [Suspect]
     Indication: BIPOLAR DISORDER
     Dosage: DOSE WAS REDUCED TO 5MG/DAY.
     Route: 048
     Dates: start: 20080514, end: 20081028
  2. TEGRETOL [Concomitant]
     Dates: start: 19940101
  3. DEPAKOTE [Concomitant]
     Dates: start: 20060101

REACTIONS (3)
  - HYPERTRIGLYCERIDAEMIA [None]
  - PANCREATITIS [None]
  - SEDATION [None]
